FAERS Safety Report 6770356-3 (Version None)
Quarter: 2010Q2

REPORT INFORMATION
  Report Type: 
  Country: None (occurrence: None)
  Receive Date: 20100615
  Receipt Date: 20100602
  Transmission Date: 20101027
  Serious: Yes (Other)
  Sender: FDA-Public Use
  Company Number: MX-ELI_LILLY_AND_COMPANY-MX201005002019

PATIENT
  Sex: Female

DRUGS (4)
  1. FORTEO [Suspect]
     Indication: OSTEOPOROSIS
     Dosage: UNK UNK, UNKNOWN
     Route: 065
     Dates: start: 20090801
  2. BUSCAPINA [Concomitant]
     Indication: DIARRHOEA
     Dosage: UNK, UNKNOWN
     Route: 065
  3. ZACTOS [Concomitant]
     Indication: DIABETES MELLITUS
     Dosage: 30 MG, DAILY (1/D)
     Route: 065
  4. OMEPRAZOLE [Concomitant]
     Indication: GASTRITIS
     Dosage: 20 MG, DAILY (1/D)
     Route: 065

REACTIONS (2)
  - GLAUCOMA [None]
  - SPINAL FRACTURE [None]
